FAERS Safety Report 16987491 (Version 1)
Quarter: 2019Q4

REPORT INFORMATION
  Report Type: Spontaneous
  Country: GB (occurrence: GB)
  Receive Date: 20191104
  Receipt Date: 20191104
  Transmission Date: 20200122
  Serious: Yes (Other)
  Sender: FDA-Public Use
  Company Number: GB-B.I. PHARMACEUTICALS,INC./RIDGEFIELD-2019-12-110345

PATIENT
  Age: 45 Year
  Sex: Male
  Weight: 115 kg

DRUGS (3)
  1. JARDIANCE [Suspect]
     Active Substance: EMPAGLIFLOZIN
     Indication: TYPE 2 DIABETES MELLITUS
     Route: 048
     Dates: start: 20190815, end: 20191010
  2. METFORMIN [Concomitant]
     Active Substance: METFORMIN HYDROCHLORIDE
     Indication: PRODUCT USED FOR UNKNOWN INDICATION
     Route: 065
     Dates: start: 201907
  3. GLICLAZIDE [Concomitant]
     Active Substance: GLICLAZIDE
     Indication: PRODUCT USED FOR UNKNOWN INDICATION
     Route: 065
     Dates: start: 201907, end: 201908

REACTIONS (7)
  - Skin weeping [Unknown]
  - Pain of skin [Unknown]
  - Skin disorder [Unknown]
  - Balanoposthitis [Unknown]
  - Skin infection [Unknown]
  - Skin swelling [Unknown]
  - Erythema [Unknown]

NARRATIVE: CASE EVENT DATE: 20190922
